FAERS Safety Report 7734554-4 (Version None)
Quarter: 2011Q3

REPORT INFORMATION
  Report Type: 
  Country: None (occurrence: None)
  Receive Date: 20110907
  Receipt Date: 20110901
  Transmission Date: 20111222
  Serious: Yes (Hospitalization)
  Sender: FDA-Public Use
  Company Number: FR-GLAXOSMITHKLINE-B0743879A

PATIENT
  Sex: Female

DRUGS (8)
  1. ZANTAC [Suspect]
     Indication: PREMEDICATION
     Dosage: 50MG UNKNOWN
     Route: 042
     Dates: start: 20110621, end: 20110621
  2. METHYLPREDNISOLONE [Suspect]
     Indication: PREMEDICATION
     Dosage: 60MG UNKNOWN
     Route: 042
     Dates: start: 20110621, end: 20110621
  3. PACLITAXEL [Suspect]
     Indication: RECTAL CANCER
     Dosage: 306.25MG SEE DOSAGE TEXT
     Route: 042
     Dates: start: 20110621, end: 20110621
  4. CARBOPLATIN [Suspect]
     Indication: RECTAL CANCER
     Dosage: 664.6MG SEE DOSAGE TEXT
     Route: 042
     Dates: start: 20110621, end: 20110621
  5. KYTRIL [Suspect]
     Indication: PREMEDICATION
     Dosage: 3MG UNKNOWN
     Route: 042
     Dates: start: 20110621, end: 20110621
  6. EMEND [Suspect]
     Indication: PREMEDICATION
     Dosage: 125MG UNKNOWN
     Route: 048
     Dates: start: 20110621, end: 20110621
  7. METOCLOPRAMIDE [Suspect]
     Indication: PREMEDICATION
     Dosage: 20MG UNKNOWN
     Route: 042
     Dates: start: 20110621, end: 20110621
  8. DESLORATADINE [Suspect]
     Indication: PREMEDICATION
     Dosage: 1TAB UNKNOWN
     Route: 048
     Dates: start: 20110621, end: 20110621

REACTIONS (10)
  - VOMITING [None]
  - HYPOTENSION [None]
  - PAIN [None]
  - LUNG INFECTION [None]
  - MALAISE [None]
  - PAINFUL RESPIRATION [None]
  - GENERAL PHYSICAL HEALTH DETERIORATION [None]
  - ABDOMINAL PAIN [None]
  - NAUSEA [None]
  - HYPERHIDROSIS [None]
